FAERS Safety Report 8712059 (Version 4)
Quarter: 2013Q4

REPORT INFORMATION
  Report Type: Spontaneous
  Country: GB (occurrence: GB)
  Receive Date: 20120807
  Receipt Date: 20131017
  Transmission Date: 20140711
  Serious: Yes (Other)
  Sender: FDA-Public Use
  Company Number: GB-PFIZER INC-2012186318

PATIENT
  Age: 65 Year
  Sex: Female
  Weight: 69.85 kg

DRUGS (6)
  1. CITALOPRAM [Suspect]
     Indication: ANXIETY
     Dosage: 1 DF, 1X/DAY
     Route: 048
     Dates: start: 20110823
  2. ATENOLOL [Suspect]
     Dosage: 1 DF, 1X/DAY
     Route: 048
     Dates: start: 20111115
  3. LYRICA [Suspect]
     Indication: STRESS
     Dosage: 1 DF, 1X/DAY
     Route: 048
     Dates: start: 20110919
  4. ATORVASTATIN [Suspect]
     Indication: HYPERCHOLESTEROLAEMIA
     Dosage: 1 DF, 1X/DAY
     Route: 048
     Dates: start: 20110914
  5. RANITIDINE [Suspect]
     Indication: HERNIA
     Dosage: 1 DF, 2X/DAY
     Route: 048
     Dates: start: 20120502
  6. DOMPERIDONE [Suspect]
     Indication: ACID BASE BALANCE ABNORMAL
     Dosage: 1 DF, 3X/DAY
     Route: 048
     Dates: start: 20120301

REACTIONS (2)
  - Glossodynia [Unknown]
  - Burning sensation [Unknown]
